FAERS Safety Report 7311740-9 (Version None)
Quarter: 2011Q1

REPORT INFORMATION
  Report Type: 
  Country: None (occurrence: None)
  Receive Date: 20110215
  Receipt Date: 20110215
  Transmission Date: 20110831
  Serious: Yes (Life-Threatening, Other)
  Sender: FDA-Public Use
  Company Number: None

PATIENT
  Sex: Female
  Weight: 56.6996 kg

DRUGS (1)
  1. DARVON [Suspect]
     Dosage: 65MG 5 A DAY PO (JUNE 2002 UNTIL RECALL OF MEDICATIONS)
     Route: 048
     Dates: start: 20020601

REACTIONS (5)
  - CHEST PAIN [None]
  - PALPITATIONS [None]
  - TRICUSPID VALVE INCOMPETENCE [None]
  - CARDIOMEGALY [None]
  - CARDIAC FAILURE CONGESTIVE [None]
